FAERS Safety Report 10542983 (Version 1)
Quarter: 2014Q4

REPORT INFORMATION
  Report Type: Report from Study
  Country: US (occurrence: US)
  Receive Date: 20141027
  Receipt Date: 20141027
  Transmission Date: 20150529
  Serious: Yes (Hospitalization, Other)
  Sender: FDA-Public Use
  Company Number: US-ROCHE-1479637

PATIENT
  Age: 5 Year
  Sex: Female
  Weight: 26.6 kg

DRUGS (25)
  1. HEPARIN [Concomitant]
     Active Substance: HEPARIN SODIUM
  2. SEVELAMER [Concomitant]
     Active Substance: SEVELAMER
     Dosage: POWDER FOR RECONSTITUTION
     Route: 065
  3. NUTROPIN AQ [Suspect]
     Active Substance: SOMATROPIN
     Indication: CHRONIC KIDNEY DISEASE
     Route: 058
  4. EPOETIN ALFA [Concomitant]
     Active Substance: ERYTHROPOIETIN
     Dosage: 750 UNITS
     Route: 058
  5. NYSTATIN. [Concomitant]
     Active Substance: NYSTATIN
     Route: 065
  6. CEFEPIME [Concomitant]
     Active Substance: CEFEPIME\CEFEPIME HYDROCHLORIDE
  7. CLONAZEPAM. [Suspect]
     Active Substance: CLONAZEPAM
     Dosage: AT PM EVERY DAY
     Route: 065
  8. POLYETHYLENE GLYCOL 3350. [Concomitant]
     Active Substance: POLYETHYLENE GLYCOL 3350
     Route: 065
  9. CEFTAZIDIME. [Concomitant]
     Active Substance: CEFTAZIDIME
     Route: 042
  10. TRIAMCINOLONE [Concomitant]
     Active Substance: TRIAMCINOLONE
     Route: 061
  11. POLYETHYLENE GLYCOL 3350. [Concomitant]
     Active Substance: POLYETHYLENE GLYCOL 3350
     Route: 048
  12. VANCOMYCIN [Concomitant]
     Active Substance: VANCOMYCIN
     Route: 042
  13. CALCITROL [Concomitant]
     Active Substance: CALCITRIOL
     Route: 048
  14. CINACALCET [Concomitant]
     Active Substance: CINACALCET
     Dosage: 45 MG GTUBE
     Route: 065
  15. FERROUS SULFATE [Concomitant]
     Active Substance: FERROUS SULFATE\FERROUS SULFATE, DRIED
     Route: 048
  16. GENTAMICIN. [Concomitant]
     Active Substance: GENTAMICIN
     Dosage: 1 VIAL
     Route: 061
  17. RANITIDINE [Concomitant]
     Active Substance: RANITIDINE\RANITIDINE HYDROCHLORIDE
     Route: 065
  18. SEVELAMER [Concomitant]
     Active Substance: SEVELAMER
     Dosage: G-TUBE
     Route: 065
  19. CLONAZEPAM. [Suspect]
     Active Substance: CLONAZEPAM
     Indication: PRODUCT USED FOR UNKNOWN INDICATION
     Dosage: 0.25 MG AT AM EVERY DAY
     Route: 065
  20. CLONIDINE. [Concomitant]
     Active Substance: CLONIDINE
     Route: 048
  21. ENALAPRIL [Concomitant]
     Active Substance: ENALAPRIL
     Route: 048
  22. EPOETIN ALFA [Concomitant]
     Active Substance: ERYTHROPOIETIN
     Dosage: 3000 UNITS
     Route: 058
  23. RANITIDINE [Concomitant]
     Active Substance: RANITIDINE\RANITIDINE HYDROCHLORIDE
     Dosage: G-TUBE
     Route: 065
  24. CARVEDILOL. [Suspect]
     Active Substance: CARVEDILOL
     Indication: PRODUCT USED FOR UNKNOWN INDICATION
     Dosage: 3.5G TUBE
     Route: 065
  25. SODIUM CHLORIDE. [Concomitant]
     Active Substance: SODIUM CHLORIDE
     Route: 048

REACTIONS (21)
  - Renal transplant failure [Unknown]
  - Headache [Unknown]
  - Anxiety [Unknown]
  - Hypertension [Unknown]
  - Decreased appetite [Unknown]
  - Constipation [Unknown]
  - Depression [Unknown]
  - Weight decreased [Unknown]
  - Cough [Unknown]
  - Dizziness [Unknown]
  - Epistaxis [Unknown]
  - Insomnia [Unknown]
  - Wheezing [Unknown]
  - Excessive granulation tissue [Unknown]
  - Hypercalcaemia [Unknown]
  - Peritonitis bacterial [Recovered/Resolved]
  - Hypophagia [Unknown]
  - Vulvovaginal pruritus [Unknown]
  - Vomiting [Unknown]
  - Focal segmental glomerulosclerosis [Unknown]
  - Mouth ulceration [Unknown]

NARRATIVE: CASE EVENT DATE: 20090624
